FAERS Safety Report 11932548 (Version 1)
Quarter: 2016Q1

REPORT INFORMATION
  Report Type: Spontaneous
  Country: US (occurrence: US)
  Receive Date: 20160120
  Receipt Date: 20160120
  Transmission Date: 20160526
  Serious: No
  Sender: FDA-Public Use
  Company Number: US-ASTRAZENECA-2016SE03433

PATIENT
  Age: 84 Year
  Sex: Female
  Weight: 59 kg

DRUGS (7)
  1. DEXILANT [Concomitant]
     Active Substance: DEXLANSOPRAZOLE
     Indication: GASTROOESOPHAGEAL REFLUX DISEASE
     Route: 048
  2. THERATEARS [Concomitant]
     Active Substance: CARBOXYMETHYLCELLULOSE SODIUM
  3. NASONEX [Concomitant]
     Active Substance: MOMETASONE FUROATE
     Indication: HYPERSENSITIVITY
     Dosage: DAILY
     Route: 045
     Dates: start: 2015
  4. PRESERVISION [Concomitant]
     Active Substance: MINERALS\VITAMINS
  5. SYMBICORT [Suspect]
     Active Substance: BUDESONIDE\FORMOTEROL FUMARATE DIHYDRATE
     Indication: DYSPNOEA
     Dosage: 80 OVER 4.5 2 PUFFS IN THE MORNING AND 2 AT NIGHT
     Route: 055
     Dates: start: 2015
  6. LEVOTHYROXINE. [Concomitant]
     Active Substance: LEVOTHYROXINE
     Indication: THYROID DISORDER
     Route: 048
  7. SULFUR. [Concomitant]
     Active Substance: SULFUR

REACTIONS (7)
  - Dyspnoea [Unknown]
  - Secretion discharge [Unknown]
  - Hypersensitivity [Unknown]
  - Off label use [Unknown]
  - Product quality issue [Unknown]
  - Product use issue [Unknown]
  - Intentional product misuse [Unknown]

NARRATIVE: CASE EVENT DATE: 2015
